FAERS Safety Report 8581465-0 (Version None)
Quarter: 2012Q2

REPORT INFORMATION
  Report Type: 
  Country: None (occurrence: None)
  Receive Date: 20120423
  Receipt Date: 20101013
  Transmission Date: 20120825
  Serious: Yes (Hospitalization)
  Sender: FDA-Public Use
  Company Number: PHHY2010US17550

PATIENT
  Age: 63 Year
  Sex: Female

DRUGS (2)
  1. EXJADE [Suspect]
     Dosage: 1000 MG DAILY, ORAL
     Route: 048
  2. VITAMIN D [Concomitant]

REACTIONS (6)
  - DECREASED APPETITE [None]
  - SERUM FERRITIN INCREASED [None]
  - APHAGIA [None]
  - GASTROINTESTINAL TRACT IRRITATION [None]
  - NEUROPATHY PERIPHERAL [None]
  - OESOPHAGITIS [None]
